FAERS Safety Report 4745934-3 (Version None)
Quarter: 2005Q3

REPORT INFORMATION
  Report Type: 
  Country: None (occurrence: None)
  Receive Date: 20050816
  Receipt Date: 20050523
  Transmission Date: 20060218
  Serious: Yes (Life-Threatening)
  Sender: FDA-Public Use
  Company Number: JP-GLAXOSMITHKLINE-B0382517A

PATIENT
  Age: 38 Year
  Sex: Male

DRUGS (7)
  1. PAXIL [Suspect]
     Indication: DEPRESSION
     Dosage: 20MG PER DAY
     Route: 048
     Dates: start: 20050519, end: 20050521
  2. AMOXAN [Suspect]
     Indication: DEPRESSION
     Route: 048
     Dates: start: 20050507, end: 20050521
  3. LUDIOMIL [Concomitant]
     Indication: DEPRESSION
     Route: 048
     Dates: start: 20050411, end: 20050506
  4. CORTRIL [Concomitant]
     Indication: SECONDARY ADRENOCORTICAL INSUFFICIENCY
     Dosage: 20MG PER DAY
     Route: 048
     Dates: start: 20050411, end: 20050521
  5. THYRADIN S [Concomitant]
     Indication: SECONDARY HYPOTHYROIDISM
     Dosage: 150MCG PER DAY
     Route: 048
     Dates: start: 20050411, end: 20050521
  6. ROHYPNOL [Concomitant]
     Indication: DEPRESSION
     Dosage: 1MG PER DAY
     Route: 048
     Dates: start: 20050411, end: 20050520
  7. SEDIEL [Concomitant]
     Indication: DEPRESSION
     Dosage: 90MG PER DAY
     Route: 048
     Dates: start: 20050427, end: 20050504

REACTIONS (11)
  - DEPRESSED LEVEL OF CONSCIOUSNESS [None]
  - DYSLALIA [None]
  - DYSPHAGIA [None]
  - EATING DISORDER [None]
  - EYELID FUNCTION DISORDER [None]
  - GASTROINTESTINAL HYPOMOTILITY [None]
  - GLOSSOPTOSIS [None]
  - MUSCULOSKELETAL STIFFNESS [None]
  - NEUROLEPTIC MALIGNANT SYNDROME [None]
  - PYREXIA [None]
  - SEROTONIN SYNDROME [None]
